FAERS Safety Report 6374457-3 (Version None)
Quarter: 2009Q3

REPORT INFORMATION
  Report Type: 
  Country: None (occurrence: None)
  Receive Date: 20090915
  Receipt Date: 20090915
  Transmission Date: 20100115
  Serious: Yes (Hospitalization)
  Sender: FDA-Public Use
  Company Number: None

PATIENT
  Sex: Female
  Weight: 50.5 kg

DRUGS (6)
  1. CYCLOPHOSPHAMIDE [Suspect]
     Dosage: 1400 MG
  2. CYTARABINE [Suspect]
     Dosage: 105MG
  3. MERCAPTOPURINE [Suspect]
     Dosage: 600 MG
  4. METHOTREXATE [Suspect]
     Dosage: 15 MG
  5. PEG-L ASPARGINASE (K- H) [Suspect]
     Dosage: 14000 UNITS
  6. VINCRISTINE SULFATE [Suspect]
     Dosage: 2 MG

REACTIONS (7)
  - DYSPNOEA [None]
  - NAUSEA [None]
  - RASH [None]
  - RASH ERYTHEMATOUS [None]
  - RASH PAPULAR [None]
  - SENSE OF OPPRESSION [None]
  - VOMITING [None]
